FAERS Safety Report 4482095-2 (Version None)
Quarter: 2004Q4

REPORT INFORMATION
  Report Type: 
  Country: None (occurrence: None)
  Receive Date: 20041020
  Receipt Date: 20041001
  Transmission Date: 20050328
  Serious: Yes (Other)
  Sender: FDA-Public Use
  Company Number: USA040669799

PATIENT
  Sex: Female

DRUGS (11)
  1. FORTEO [Suspect]
     Dosage: 20 UG/1 DAY
     Dates: start: 20030117, end: 20040401
  2. ATENOLOL [Concomitant]
  3. BEXTRA [Concomitant]
  4. ZOCOR (SIMVASTATIN RATIOPHARM) [Concomitant]
  5. FOSAMAX [Concomitant]
  6. MULTI-VITAMIN [Concomitant]
  7. MIACALCIN [Concomitant]
  8. DIOVAN [Concomitant]
  9. ETIDRONATE DISODIUM [Concomitant]
  10. ROCALTROL [Concomitant]
  11. CALCIUM [Concomitant]

REACTIONS (1)
  - HYPERCALCAEMIA [None]
